FAERS Safety Report 9074120 (Version 1)
Quarter: 2013Q1

REPORT INFORMATION
  Report Type: Report from Study
  Country: US (occurrence: US)
  Receive Date: 20130129
  Receipt Date: 20130129
  Transmission Date: 20140127
  Serious: No
  Sender: FDA-Public Use
  Company Number: US-ABBOTT-12P-163-0917160-00

PATIENT
  Age: 56 Year
  Sex: Female

DRUGS (6)
  1. HUMIRA 40 MG/0.8 ML PEN [Suspect]
     Indication: RHEUMATOID ARTHRITIS
     Dates: start: 20120120
  2. PREDNISONE [Concomitant]
     Indication: RHEUMATOID ARTHRITIS
     Dosage: DAILY
  3. VITAMIN B [Concomitant]
     Indication: SUPPLEMENTATION THERAPY
  4. METHOTREXATE [Concomitant]
     Indication: PAIN IN EXTREMITY
     Dosage: 4 TABS EVERY SATURDAY AND EVERY SUNDAY
  5. METHOTREXATE [Concomitant]
  6. NAPROXEN [Concomitant]
     Indication: PAIN IN EXTREMITY

REACTIONS (5)
  - Chest pain [Recovering/Resolving]
  - Pain in extremity [Recovered/Resolved]
  - Pain in extremity [Recovered/Resolved]
  - Gastroenteritis bacterial [Recovering/Resolving]
  - Abdominal pain upper [Recovering/Resolving]
